FAERS Safety Report 10005897 (Version 2)
Quarter: 2014Q2

REPORT INFORMATION
  Report Type: Spontaneous
  Country: GB (occurrence: GB)
  Receive Date: 20140313
  Receipt Date: 20140519
  Transmission Date: 20141212
  Serious: Yes (Hospitalization, Disabling)
  Sender: FDA-Public Use
  Company Number: GB-ACCORD-022357

PATIENT
  Age: 21 Year
  Sex: Female
  Weight: 84 kg

DRUGS (6)
  1. QUETIAPINE [Suspect]
     Indication: PRODUCT USED FOR UNKNOWN INDICATION
     Dosage: UNK, UNKNOWN
     Route: 065
     Dates: start: 201311, end: 201401
  2. RISPERIDONE [Suspect]
     Indication: AGITATION
     Dosage: 0.5 MG, BID
     Route: 065
  3. CIRCADIN [Concomitant]
     Indication: INSOMNIA
     Dosage: 8 MG, UNKNOWN
     Route: 065
     Dates: start: 201306
  4. SERTRALINE [Concomitant]
     Indication: AGITATION
     Dosage: 50 MG, UNKNOWN
     Route: 065
     Dates: start: 201310
  5. CITALOPRAM [Suspect]
     Indication: PRODUCT USED FOR UNKNOWN INDICATION
     Dosage: 20 MG, UNKNOWN
     Route: 065
     Dates: start: 201302
  6. STRATTERA [Suspect]
     Indication: ATTENTION DEFICIT/HYPERACTIVITY DISORDER
     Dosage: CONTINUED ATOMOXETINE THERAPY DUE TO IMPROVEMENT OF CONCENTRATION AND REDUCED IMPULSIVITY.
     Route: 065
     Dates: start: 201305

REACTIONS (8)
  - Depression [Not Recovered/Not Resolved]
  - Merycism [Not Recovered/Not Resolved]
  - Major depression [Not Recovered/Not Resolved]
  - Attention deficit/hyperactivity disorder [Not Recovered/Not Resolved]
  - Somnolence [Not Recovered/Not Resolved]
  - Sedation [Not Recovered/Not Resolved]
  - Agitation [Not Recovered/Not Resolved]
  - Bipolar I disorder [Not Recovered/Not Resolved]
